FAERS Safety Report 4580841-0 (Version None)
Quarter: 2005Q1

REPORT INFORMATION
  Report Type: 
  Country: None (occurrence: None)
  Receive Date: 20050214
  Receipt Date: 20040609
  Transmission Date: 20050727
  Serious: No
  Sender: FDA-Public Use
  Company Number: US-GLAXOSMITHKLINE-A0514168A

PATIENT
  Age: 47 Year
  Sex: Male
  Weight: 77.3 kg

DRUGS (2)
  1. LAMICTAL [Suspect]
     Indication: BIPOLAR DISORDER
     Route: 048
  2. ANTIVIRAL [Concomitant]
     Indication: HEPATITIS C

REACTIONS (1)
  - RASH [None]
